FAERS Safety Report 7457993-8 (Version None)
Quarter: 2011Q2

REPORT INFORMATION
  Report Type: 
  Country: None (occurrence: None)
  Receive Date: 20110503
  Receipt Date: 20110503
  Transmission Date: 20111010
  Serious: Yes (Hospitalization)
  Sender: FDA-Public Use
  Company Number: None

PATIENT
  Age: 51 Year
  Sex: Female
  Weight: 68.9467 kg

DRUGS (1)
  1. BONIVA [Suspect]
     Indication: OSTEOPOROSIS
     Dates: start: 20110305, end: 20110402

REACTIONS (5)
  - INSOMNIA [None]
  - FATIGUE [None]
  - HYPOAESTHESIA [None]
  - VOMITING [None]
  - ARTHRALGIA [None]
